FAERS Safety Report 6075530-X (Version None)
Quarter: 2009Q1

REPORT INFORMATION
  Report Type: 
  Country: None (occurrence: None)
  Receive Date: 20090210
  Receipt Date: 20090210
  Transmission Date: 20090719
  Serious: Yes (Other)
  Sender: FDA-Public Use
  Company Number: None

PATIENT
  Age: 43 Year
  Sex: Male
  Weight: 90.7194 kg

DRUGS (1)
  1. CIPROFLOXACIN [Suspect]
     Indication: PROSTATITIS
     Dosage: 1TAB 2X A DAY PO 4 500MG DOSES ONLY
     Route: 048

REACTIONS (4)
  - DRUG DOSE OMISSION [None]
  - EYE SWELLING [None]
  - EYELID DISORDER [None]
  - SENSATION OF PRESSURE [None]
